FAERS Safety Report 8359812-4 (Version None)
Quarter: 2012Q2

REPORT INFORMATION
  Report Type: 
  Country: None (occurrence: None)
  Receive Date: 20120515
  Receipt Date: 20120503
  Transmission Date: 20120825
  Serious: Yes (Death)
  Sender: FDA-Public Use
  Company Number: PHHY2012PK040650

PATIENT
  Sex: Female
  Weight: 95 kg

DRUGS (1)
  1. EXFORGE [Suspect]
     Indication: HYPERTENSION
     Dosage: 1 DF (80 MG VALS AND 5 MG AMLO), DAILY
     Route: 048
     Dates: start: 20111004

REACTIONS (1)
  - MYOCARDIAL INFARCTION [None]
